FAERS Safety Report 10496517 (Version 2)
Quarter: 2014Q4

REPORT INFORMATION
  Report Type: Spontaneous
  Country: US (occurrence: US)
  Receive Date: 20141004
  Receipt Date: 20141013
  Transmission Date: 20150528
  Serious: No
  Sender: FDA-Public Use
  Company Number: US-009507513-1409USA014992

PATIENT
  Sex: Female
  Weight: 48.73 kg

DRUGS (1)
  1. IMPLANON [Suspect]
     Active Substance: ETONOGESTREL
     Dosage: ONE ROD, EVERY 3 YEARS, IN LEFT ARM
     Route: 059
     Dates: start: 20130220

REACTIONS (2)
  - Device deployment issue [Unknown]
  - No adverse event [Unknown]
